FAERS Safety Report 9465653 (Version 2)
Quarter: 2013Q3

REPORT INFORMATION
  Report Type: Spontaneous
  Country: BR (occurrence: BR)
  Receive Date: 20130820
  Receipt Date: 20130823
  Transmission Date: 20140515
  Serious: No
  Sender: FDA-Public Use
  Company Number: PHHY2013BR089445

PATIENT
  Sex: Female

DRUGS (2)
  1. DIOVAN HCT [Suspect]
     Indication: HYPERTENSION
     Dosage: 1 DF (80 MG VALS AND 12.5 MG HCTZ) DAILY
     Route: 048
  2. VALSARTAN [Suspect]
     Indication: HYPERTENSION
     Dosage: 1 DF (80 MG) DAILY JUST USED 15 TABLETS
     Route: 048

REACTIONS (1)
  - Dizziness [Recovered/Resolved]
